FAERS Safety Report 11881767 (Version 2)
Quarter: 2016Q1

REPORT INFORMATION
  Report Type: Spontaneous
  Country: US (occurrence: US)
  Receive Date: 20151231
  Receipt Date: 20160121
  Transmission Date: 20160526
  Serious: Yes (Other)
  Sender: FDA-Public Use
  Company Number: US-BAYER-2015-494593

PATIENT
  Age: 36 Year
  Sex: Male
  Weight: 108.84 kg

DRUGS (2)
  1. ALEVE [Suspect]
     Active Substance: NAPROXEN SODIUM
     Indication: HEADACHE
     Dosage: 2 DF, PRN
     Route: 048
  2. ALEVE [Suspect]
     Active Substance: NAPROXEN SODIUM
     Indication: HEADACHE
     Dosage: 8 DF, W
     Route: 048
     Dates: start: 20151221, end: 20151221

REACTIONS (5)
  - Renal disorder [Unknown]
  - Abdominal pain upper [None]
  - Product use issue [None]
  - Drug ineffective [None]
  - Renal pain [Not Recovered/Not Resolved]

NARRATIVE: CASE EVENT DATE: 20151221
